FAERS Safety Report 7294816-4 (Version None)
Quarter: 2011Q1

REPORT INFORMATION
  Report Type: 
  Country: None (occurrence: None)
  Receive Date: 20110216
  Receipt Date: 20101217
  Transmission Date: 20110831
  Serious: Yes (Other)
  Sender: FDA-Public Use
  Company Number: US-BAYER-201027031NA

PATIENT
  Sex: Female

DRUGS (4)
  1. OCELLA [Suspect]
     Indication: PRODUCT USED FOR UNKNOWN INDICATION
     Route: 048
     Dates: start: 20080501, end: 20100401
  2. PRILOSEC [Concomitant]
     Dosage: 20 MG, UNK
  3. YASMIN [Suspect]
     Indication: PRODUCT USED FOR UNKNOWN INDICATION
     Route: 048
     Dates: start: 20080501, end: 20100401
  4. CARAFATE [Concomitant]
     Dosage: 1 G, UNK

REACTIONS (6)
  - ABDOMINAL PAIN UPPER [None]
  - GALLBLADDER INJURY [None]
  - VOMITING [None]
  - NAUSEA [None]
  - CHOLECYSTITIS CHRONIC [None]
  - PYREXIA [None]
